FAERS Safety Report 24742044 (Version 2)
Quarter: 2024Q4

REPORT INFORMATION
  Report Type: Report from Study
  Country: KR (occurrence: KR)
  Receive Date: 20241217
  Receipt Date: 20241220
  Transmission Date: 20250115
  Serious: Yes (Hospitalization)
  Sender: ABBVIE
  Company Number: KR-ABBVIE-6042806

PATIENT
  Age: 44 Year
  Sex: Female
  Weight: 63 kg

DRUGS (7)
  1. RINVOQ [Suspect]
     Active Substance: UPADACITINIB
     Indication: Rheumatoid arthritis
     Dosage: FORM STRENGTH: 15 MILLIGRAM
     Route: 048
     Dates: start: 20240413
  2. RINVOQ [Suspect]
     Active Substance: UPADACITINIB
     Indication: Rheumatoid arthritis
     Dosage: FORM STRENGTH: 15 MILLIGRAM
     Route: 048
     Dates: start: 20231018, end: 20240329
  3. METHOTREXATE [Concomitant]
     Active Substance: METHOTREXATE
     Indication: Rheumatoid arthritis
     Dosage: FORM STRENGTH: 2.5 MG
     Route: 065
     Dates: start: 20211014
  4. VIMOVO [Concomitant]
     Active Substance: ESOMEPRAZOLE MAGNESIUM\NAPROXEN
     Indication: Rheumatoid arthritis
     Dates: start: 20211014, end: 20231217
  5. CALTEO [Concomitant]
     Indication: Calcium deficiency
     Dosage: 40
     Route: 048
     Dates: start: 20220429, end: 20231217
  6. ARTEMISIA ARGYI LEAF [Concomitant]
     Active Substance: ARTEMISIA ARGYI LEAF
     Indication: Gastritis
     Route: 048
     Dates: start: 20220429, end: 20231217
  7. Sinil folic acid [Concomitant]
     Indication: Calcium deficiency
     Dosage: FORM STRENGTH: 1MG
     Route: 048
     Dates: start: 20220114

REACTIONS (1)
  - Pulmonary mass [Recovered/Resolved]

NARRATIVE: CASE EVENT DATE: 20240216
